FAERS Safety Report 11810261 (Version 1)
Quarter: 2015Q4

REPORT INFORMATION
  Report Type: Spontaneous
  Country: US (occurrence: US)
  Receive Date: 20151208
  Receipt Date: 20151208
  Transmission Date: 20160305
  Serious: Yes (Other)
  Sender: FDA-Public Use
  Company Number: US-MYLANLABS-2015M1043412

PATIENT

DRUGS (3)
  1. ASPIRIN                            /00002701/ [Concomitant]
     Active Substance: ASPIRIN
     Indication: PRODUCT USED FOR UNKNOWN INDICATION
     Dosage: 81MG
     Route: 065
  2. WARFARIN [Suspect]
     Active Substance: WARFARIN
     Indication: ISCHAEMIC STROKE
     Dosage: UNK
     Route: 065
  3. ENOXAPARIN SODIUM. [Suspect]
     Active Substance: ENOXAPARIN SODIUM
     Indication: ISCHAEMIC STROKE
     Dosage: 80MG EVERY 12 HOURS
     Route: 065

REACTIONS (2)
  - Muscle haemorrhage [Recovering/Resolving]
  - Muscular weakness [Recovered/Resolved]
